FAERS Safety Report 10489745 (Version 3)
Quarter: 2015Q2

REPORT INFORMATION
  Report Type: Spontaneous
  Country: JP (occurrence: JP)
  Receive Date: 20141002
  Receipt Date: 20150427
  Transmission Date: 20150821
  Serious: Yes (Life-Threatening)
  Sender: FDA-Public Use
  Company Number: JP-EISAI MEDICAL RESEARCH-EC-2014-000493

PATIENT
  Sex: Male

DRUGS (1)
  1. RABECURE [Suspect]
     Active Substance: RABEPRAZOLE SODIUM
     Indication: HELICOBACTER GASTRITIS
     Route: 048
     Dates: start: 20140913, end: 20140919

REACTIONS (3)
  - Oedema [Recovered/Resolved]
  - Renal impairment [Recovered/Resolved]
  - Drug eruption [Recovering/Resolving]

NARRATIVE: CASE EVENT DATE: 201409
